FAERS Safety Report 4541600-8 (Version None)
Quarter: 2004Q4

REPORT INFORMATION
  Report Type: 
  Country: None (occurrence: None)
  Receive Date: 20041230
  Receipt Date: 20041224
  Transmission Date: 20050328
  Serious: Yes (Other)
  Sender: FDA-Public Use
  Company Number: PHRM2004FR03766

PATIENT
  Sex: Male

DRUGS (1)
  1. LAMISIL [Suspect]
     Route: 065

REACTIONS (1)
  - INTERSTITIAL LUNG DISEASE [None]
